FAERS Safety Report 14161367 (Version 3)
Quarter: 2017Q4

REPORT INFORMATION
  Report Type: Report from Study
  Country: US (occurrence: US)
  Receive Date: 20171106
  Receipt Date: 20171204
  Transmission Date: 20180321
  Serious: Yes (Hospitalization, Other)
  Sender: FDA-Public Use
  Company Number: US-BAYER-2017-206577

PATIENT
  Age: 90 Year
  Sex: Male

DRUGS (3)
  1. STIVARGA [Suspect]
     Active Substance: REGORAFENIB
     Indication: AORTIC ANEURYSM RUPTURE
  2. STIVARGA [Suspect]
     Active Substance: REGORAFENIB
     Indication: GASTROINTESTINAL CARCINOMA
     Dosage: 2 TABLETS DAILY
     Route: 048
     Dates: start: 20150116, end: 20171025
  3. STIVARGA [Suspect]
     Active Substance: REGORAFENIB
     Indication: SOFT TISSUE SARCOMA

REACTIONS (5)
  - Medical procedure [None]
  - Adverse event [None]
  - Cellulitis [None]
  - Off label use [None]
  - Surgery [None]
